FAERS Safety Report 16175209 (Version 3)
Quarter: 2019Q2

REPORT INFORMATION
  Report Type: Spontaneous
  Country: JP (occurrence: JP)
  Receive Date: 20190409
  Receipt Date: 20190522
  Transmission Date: 20190711
  Serious: Yes (Other)
  Sender: FDA-Public Use
  Company Number: JP-ROCHE-2299360

PATIENT
  Age: 56 Year
  Sex: Female

DRUGS (4)
  1. MEGALOCIN [Concomitant]
  2. HOKUNALIN [TULOBUTEROL] [Suspect]
     Active Substance: TULOBUTEROL
     Indication: INFLUENZA
     Route: 062
     Dates: start: 20190201
  3. XOFLUZA [Suspect]
     Active Substance: BALOXAVIR MARBOXIL
     Indication: INFLUENZA
     Route: 048
     Dates: start: 2019, end: 2019
  4. CALONAL [Suspect]
     Active Substance: ACETAMINOPHEN
     Indication: INFLUENZA
     Route: 048
     Dates: start: 20190201

REACTIONS (2)
  - Diarrhoea [Recovered/Resolved]
  - Colitis ischaemic [Recovered/Resolved]

NARRATIVE: CASE EVENT DATE: 20190202
